FAERS Safety Report 8873668 (Version 1)
Quarter: 2012Q4

REPORT INFORMATION
  Report Type: 
  Country: US (occurrence: US)
  Receive Date: 20121023
  Receipt Date: 20121023
  Transmission Date: 20130627
  Serious: Yes (Other)
  Sender: FDA-Public Use
  Company Number: US-ASTELLAS-2012US004496

PATIENT
  Age: 52 Year
  Sex: Male
  Weight: 132 kg

DRUGS (1)
  1. LEXISCAN [Suspect]
     Indication: SCAN MYOCARDIAL PERFUSION
     Dosage: 0.4 mg, Total Dose
     Route: 042
     Dates: start: 20120502, end: 20120502

REACTIONS (6)
  - Atrioventricular block complete [Recovered/Resolved]
  - Cardiac arrest [Recovered/Resolved]
  - Syncope [Recovered/Resolved]
  - Blood pressure increased [Unknown]
  - Dyspnoea [Unknown]
  - Bradycardia [Recovered/Resolved]
